FAERS Safety Report 20326537 (Version 2)
Quarter: 2022Q1

REPORT INFORMATION
  Report Type: Spontaneous
  Country: PR (occurrence: PR)
  Receive Date: 20220112
  Receipt Date: 20220224
  Transmission Date: 20220423
  Serious: No
  Sender: FDA-Public Use
  Company Number: PR-PFIZER INC-202101871887

PATIENT
  Age: 13 Year
  Sex: Male
  Weight: 39.46 kg

DRUGS (1)
  1. GENOTROPIN [Suspect]
     Active Substance: SOMATROPIN
     Dosage: 1.8 SIX DAYS A WEEK.

REACTIONS (3)
  - Injury associated with device [Unknown]
  - Poor quality device used [Unknown]
  - Device mechanical issue [Unknown]
